FAERS Safety Report 15258536 (Version 1)
Quarter: 2018Q3

REPORT INFORMATION
  Report Type: Report from Study
  Country: IT (occurrence: IT)
  Receive Date: 20180809
  Receipt Date: 20180809
  Transmission Date: 20181010
  Serious: Yes (Hospitalization, Other)
  Sender: FDA-Public Use
  Company Number: IT-TEVA-2018-IT-936628

PATIENT
  Age: 78 Year
  Sex: Male
  Weight: 65 kg

DRUGS (11)
  1. 5?FLUOROURACIL [Suspect]
     Active Substance: FLUOROURACIL
     Route: 040
     Dates: start: 20150305, end: 20150305
  2. AFLIBERCEPT [Suspect]
     Active Substance: AFLIBERCEPT
     Indication: COLORECTAL CANCER METASTATIC
     Route: 041
     Dates: start: 20150305, end: 20150305
  3. ULTRAPROCT [Concomitant]
     Route: 065
     Dates: start: 20150513, end: 20150515
  4. 5?FLUOROURACIL [Suspect]
     Active Substance: FLUOROURACIL
     Indication: COLORECTAL CANCER METASTATIC
     Route: 041
     Dates: start: 20150305, end: 20150305
  5. 5?FLUOROURACIL [Suspect]
     Active Substance: FLUOROURACIL
     Route: 040
     Dates: start: 20150504, end: 20150504
  6. IRINOTECAN [Suspect]
     Active Substance: IRINOTECAN
     Route: 041
     Dates: start: 20150504, end: 20150504
  7. LEUCOVORIN. [Suspect]
     Active Substance: LEUCOVORIN
     Indication: COLORECTAL CANCER METASTATIC
     Route: 041
     Dates: start: 20150305, end: 20150305
  8. ARVENUM [Concomitant]
     Active Substance: DIOSMIN
     Route: 065
     Dates: start: 20150513, end: 20150515
  9. LEUCOVORIN. [Suspect]
     Active Substance: LEUCOVORIN
     Route: 041
     Dates: start: 20150504
  10. 5?FLUOROURACIL [Suspect]
     Active Substance: FLUOROURACIL
     Route: 041
     Dates: start: 20150504, end: 20150504
  11. IRINOTECAN [Suspect]
     Active Substance: IRINOTECAN
     Indication: COLORECTAL CANCER METASTATIC
     Route: 041
     Dates: start: 20150305, end: 20150305

REACTIONS (3)
  - Pulmonary embolism [Recovered/Resolved]
  - Haemorrhoidal haemorrhage [Recovered/Resolved]
  - Aortic thrombosis [Recovered/Resolved]

NARRATIVE: CASE EVENT DATE: 20150513
